FAERS Safety Report 20912686 (Version 1)
Quarter: 2022Q2

REPORT INFORMATION
  Report Type: Spontaneous
  Country: MX (occurrence: MX)
  Receive Date: 20220603
  Receipt Date: 20220603
  Transmission Date: 20220720
  Serious: Yes (Other)
  Sender: FDA-Public Use
  Company Number: MX-ROCHE-3101088

PATIENT
  Age: 48 Year
  Sex: Female
  Weight: 66 kg

DRUGS (1)
  1. MIRCERA [Suspect]
     Active Substance: METHOXY POLYETHYLENE GLYCOL-EPOETIN BETA
     Indication: Nephrogenic anaemia
     Route: 058

REACTIONS (2)
  - Acquired cystic kidney disease [Not Recovered/Not Resolved]
  - Therapy interrupted [Unknown]
